FAERS Safety Report 6159432-6 (Version None)
Quarter: 2009Q2

REPORT INFORMATION
  Report Type: 
  Country: None (occurrence: None)
  Receive Date: 20090417
  Receipt Date: 20090408
  Transmission Date: 20091009
  Serious: Yes (Death)
  Sender: FDA-Public Use
  Company Number: JP-ABBOTT-09P-087-0568619-00

PATIENT
  Age: 85 Year
  Sex: Male

DRUGS (3)
  1. LEUPLIN SR FOR INJECTION 11.25 MG [Suspect]
     Indication: PROSTATE CANCER STAGE II
     Route: 058
     Dates: start: 20070115, end: 20080611
  2. ARICEPT [Concomitant]
     Indication: DEMENTIA ALZHEIMER'S TYPE
     Route: 048
     Dates: start: 20011207, end: 20080725
  3. LUPRAC [Concomitant]
     Indication: CARDIAC FAILURE CHRONIC
     Route: 048
     Dates: end: 20080725

REACTIONS (1)
  - PNEUMONIA [None]
